FAERS Safety Report 6693999-4 (Version None)
Quarter: 2010Q2

REPORT INFORMATION
  Report Type: 
  Country: None (occurrence: None)
  Receive Date: 20100423
  Receipt Date: 20100414
  Transmission Date: 20101027
  Serious: Yes (Hospitalization)
  Sender: FDA-Public Use
  Company Number: FR-ASTRAZENECA-2010SE16989

PATIENT
  Age: 27668 Day
  Sex: Male

DRUGS (9)
  1. NEXIUM [Suspect]
     Indication: EMBOLISM
     Route: 042
     Dates: start: 20100128, end: 20100203
  2. MORPHINE [Suspect]
     Route: 042
     Dates: start: 20100128, end: 20100202
  3. PRIMPERAN [Concomitant]
     Indication: NAUSEA
     Dosage: 10 MG/2 ML DAILY
     Route: 042
  4. PERFALGAN [Concomitant]
     Route: 042
  5. AUGMENTIN '125' [Concomitant]
     Indication: HERNIA
     Route: 042
     Dates: start: 20100129, end: 20100202
  6. SPASFON [Concomitant]
     Indication: ABDOMINAL PAIN
     Route: 042
     Dates: start: 20100128, end: 20100203
  7. PROPRANOLOL [Concomitant]
     Indication: VARICES OESOPHAGEAL
     Route: 048
  8. DUPHALAC [Concomitant]
     Indication: CONSTIPATION
     Route: 048
  9. SERESTA [Concomitant]
     Indication: AGITATION
     Route: 048

REACTIONS (3)
  - CONFUSIONAL STATE [None]
  - DELIRIUM [None]
  - HALLUCINATION [None]
